FAERS Safety Report 21127041 (Version 1)
Quarter: 2022Q3

REPORT INFORMATION
  Report Type: Spontaneous
  Country: US (occurrence: US)
  Receive Date: 20220725
  Receipt Date: 20220725
  Transmission Date: 20221027
  Serious: No
  Sender: FDA-Public Use
  Company Number: US-ABBVIE-21K-163-4033126-00

PATIENT

DRUGS (1)
  1. SYNTHROID [Suspect]
     Active Substance: LEVOTHYROXINE SODIUM
     Indication: Product used for unknown indication
     Route: 048

REACTIONS (7)
  - Thyroid disorder [Unknown]
  - Asthenia [Unknown]
  - Metabolic disorder [Unknown]
  - Libido decreased [Unknown]
  - Feeling abnormal [Unknown]
  - Weight decreased [Unknown]
  - Drug ineffective [Unknown]
